FAERS Safety Report 4694586-X (Version None)
Quarter: 2005Q2

REPORT INFORMATION
  Report Type: 
  Country: None (occurrence: None)
  Receive Date: 20050614
  Receipt Date: 20050331
  Transmission Date: 20051028
  Serious: No
  Sender: FDA-Public Use
  Company Number: USA050494632

PATIENT
  Sex: Male

DRUGS (3)
  1. CIALIS [Suspect]
     Dosage: 20 MG
     Dates: start: 20050329
  2. LOTENSIN [Concomitant]
  3. OSTEO BI-FLEX [Concomitant]

REACTIONS (3)
  - INSOMNIA [None]
  - PSYCHOMOTOR HYPERACTIVITY [None]
  - TENSION [None]
